FAERS Safety Report 4760204-5 (Version None)
Quarter: 2005Q3

REPORT INFORMATION
  Report Type: 
  Country: None (occurrence: None)
  Receive Date: 20050902
  Receipt Date: 20050825
  Transmission Date: 20060218
  Serious: Yes (Other)
  Sender: FDA-Public Use
  Company Number: US-JNJFOC-20050806489

PATIENT
  Sex: Female
  Weight: 72.58 kg

DRUGS (2)
  1. RISPERDAL [Suspect]
     Indication: THINKING ABNORMAL
     Route: 048
  2. WELLBUTRIN [Concomitant]
     Route: 048

REACTIONS (1)
  - TRISMUS [None]
